FAERS Safety Report 22107997 (Version 2)
Quarter: 2023Q1

REPORT INFORMATION
  Report Type: Spontaneous
  Country: ES (occurrence: ES)
  Receive Date: 20230317
  Receipt Date: 20230321
  Transmission Date: 20230417
  Serious: Yes (Other)
  Sender: FDA-Public Use
  Company Number: ES-009507513-2303ESP004861

PATIENT
  Age: 55 Year
  Sex: Male

DRUGS (1)
  1. PEMBROLIZUMAB [Suspect]
     Active Substance: PEMBROLIZUMAB
     Indication: Malignant melanoma
     Dosage: UNK

REACTIONS (4)
  - Diabetes mellitus [Unknown]
  - Hypothyroidism [Not Recovered/Not Resolved]
  - Hyperthyroidism [Unknown]
  - Thyroiditis [Unknown]
